FAERS Safety Report 24053103 (Version 2)
Quarter: 2024Q3

REPORT INFORMATION
  Report Type: Report from Study
  Country: US (occurrence: US)
  Receive Date: 20240705
  Receipt Date: 20240715
  Transmission Date: 20241017
  Serious: No
  Sender: SANOFI AVENTIS
  Company Number: US-SA-SAC20240626001321

PATIENT
  Age: 82 Year
  Sex: Female

DRUGS (2)
  1. MULTAQ [Suspect]
     Active Substance: DRONEDARONE
     Indication: Cardiac disorder
     Dosage: 1 DF, BID
     Route: 048
     Dates: start: 20240319, end: 20240620
  2. INVESTIGATIONAL PRODUCT [Suspect]
     Active Substance: INVESTIGATIONAL PRODUCT
     Dosage: UNK

REACTIONS (2)
  - Nausea [Recovering/Resolving]
  - Liver function test increased [Recovering/Resolving]
